FAERS Safety Report 6138034-1 (Version None)
Quarter: 2009Q1

REPORT INFORMATION
  Report Type: 
  Country: None (occurrence: None)
  Receive Date: 20090331
  Receipt Date: 20090130
  Transmission Date: 20090719
  Serious: Yes (Death, Other)
  Sender: FDA-Public Use
  Company Number: US-TYCO HEALTHCARE/MALLINCKRODT-T200900413

PATIENT
  Age: 55 Year
  Sex: Male

DRUGS (4)
  1. TRAMADOL HCL [Suspect]
     Route: 065
  2. METHADOSE [Suspect]
     Route: 065
  3. SERTRALINE HCL [Suspect]
     Route: 065
  4. DIAZEPAM [Suspect]
     Route: 065

REACTIONS (6)
  - CARDIO-RESPIRATORY ARREST [None]
  - COMPLETED SUICIDE [None]
  - DRUG TOXICITY [None]
  - OEDEMA [None]
  - PULMONARY CONGESTION [None]
  - UNRESPONSIVE TO STIMULI [None]
